FAERS Safety Report 14685403 (Version 1)
Quarter: 2018Q1

REPORT INFORMATION
  Report Type: Spontaneous
  Country: FR (occurrence: FR)
  Receive Date: 20180327
  Receipt Date: 20180327
  Transmission Date: 20180509
  Serious: Yes (Hospitalization)
  Sender: FDA-Public Use
  Company Number: FR-SA-2018SA085152

PATIENT
  Age: 64 Year
  Sex: Female
  Weight: 70 kg

DRUGS (7)
  1. ARAVA [Suspect]
     Active Substance: LEFLUNOMIDE
     Indication: SJOGREN^S SYNDROME
     Route: 048
  2. PREGABALIN. [Concomitant]
     Active Substance: PREGABALIN
     Route: 048
  3. LETROZOLE. [Suspect]
     Active Substance: LETROZOLE
     Indication: BREAST CANCER
     Route: 048
     Dates: start: 2016, end: 20171220
  4. EUTHYROX [Concomitant]
     Active Substance: LEVOTHYROXINE SODIUM
     Indication: HYPOTHYROIDISM
     Route: 048
  5. CANDESARTAN CILEXETIL. [Concomitant]
     Active Substance: CANDESARTAN CILEXETIL
     Indication: HYPERTENSION
     Route: 048
  6. MOPRAL [Concomitant]
     Active Substance: OMEPRAZOLE
     Route: 048
  7. FLECAINE [Concomitant]
     Active Substance: FLECAINIDE
     Route: 048
     Dates: start: 201706

REACTIONS (1)
  - Pulmonary embolism [Recovering/Resolving]

NARRATIVE: CASE EVENT DATE: 20171214
